FAERS Safety Report 7646896-1 (Version None)
Quarter: 2011Q3

REPORT INFORMATION
  Report Type: 
  Country: None (occurrence: None)
  Receive Date: 20110801
  Receipt Date: 20110719
  Transmission Date: 20111222
  Serious: Yes (Disabling, Other)
  Sender: FDA-Public Use
  Company Number: CA-CELGENEUS-028-21880-11072102

PATIENT
  Sex: Male

DRUGS (7)
  1. RABEPRAZOLE SODIUM [Concomitant]
     Route: 065
  2. SENOKOT [Concomitant]
     Route: 065
  3. ACYCLOVIR [Concomitant]
     Route: 065
  4. PREDNISONE [Concomitant]
     Dosage: 50 MILLIGRAM
     Route: 065
  5. HYDROMORPHONE HCL [Concomitant]
     Route: 065
  6. REVLIMID [Suspect]
     Dosage: 25 MILLIGRAM
     Route: 048
  7. AREDIA [Concomitant]
     Route: 065

REACTIONS (6)
  - HAEMOPTYSIS [None]
  - MUSCLE SPASMS [None]
  - PARAESTHESIA [None]
  - MALAISE [None]
  - RENAL DISORDER [None]
  - LIVER DISORDER [None]
